FAERS Safety Report 7861414-0 (Version None)
Quarter: 2011Q4

REPORT INFORMATION
  Report Type: 
  Country: None (occurrence: None)
  Receive Date: 20111027
  Receipt Date: 20111024
  Transmission Date: 20120403
  Serious: Yes (Death, Hospitalization)
  Sender: FDA-Public Use
  Company Number: FR-PFIZER INC-2010039673

PATIENT
  Age: 49 Year
  Sex: Male
  Weight: 85 kg

DRUGS (4)
  1. SUTENT [Suspect]
     Indication: TRANSITIONAL CELL CARCINOMA
     Dosage: 50 MG, 1X/DAY
     Route: 048
     Dates: start: 20091125, end: 20091228
  2. EFFEXOR [Concomitant]
     Dosage: UNK
     Dates: start: 20091001
  3. SUTENT [Suspect]
     Dosage: 50 MG, 1X/DAY
     Route: 048
     Dates: start: 20100112, end: 20100208
  4. SUTENT [Suspect]
     Dosage: 50 MG, 1X/DAY
     Route: 048
     Dates: start: 20100224, end: 20100323

REACTIONS (3)
  - URETHRAL CANCER METASTATIC [None]
  - DISEASE PROGRESSION [None]
  - HAEMOPTYSIS [None]
